FAERS Safety Report 8564368 (Version 2)
Quarter: 2013Q2

REPORT INFORMATION
  Report Type: Spontaneous
  Country: CA (occurrence: CA)
  Receive Date: 20120516
  Receipt Date: 20130520
  Transmission Date: 20140414
  Serious: Yes (Other)
  Sender: FDA-Public Use
  Company Number: CA-JNJFOC-20120506630

PATIENT
  Age: 15 Year
  Sex: Female
  Weight: 59.5 kg

DRUGS (5)
  1. REMICADE [Suspect]
     Indication: CROHN^S DISEASE
     Dosage: 5TH INFUSION
     Route: 042
     Dates: start: 20120504
  2. REMICADE [Suspect]
     Indication: CROHN^S DISEASE
     Route: 042
     Dates: start: 201112
  3. AZATHIOPRINE [Concomitant]
     Indication: CROHN^S DISEASE
     Route: 065
     Dates: start: 201111, end: 201204
  4. CALCIUM [Concomitant]
     Indication: PRODUCT USED FOR UNKNOWN INDICATION
     Route: 048
     Dates: start: 201111
  5. SOLU MEDROL [Concomitant]
     Indication: PREMEDICATION
     Route: 042
     Dates: start: 20120504

REACTIONS (3)
  - Chest discomfort [Recovered/Resolved]
  - Infusion related reaction [Recovered/Resolved]
  - Dyspnoea [Recovered/Resolved]
